FAERS Safety Report 8066892-2 (Version None)
Quarter: 2011Q4

REPORT INFORMATION
  Report Type: 
  Country: None (occurrence: None)
  Receive Date: 20111221
  Receipt Date: 20110209
  Transmission Date: 20120403
  Serious: Yes (Hospitalization, Other)
  Sender: FDA-Public Use
  Company Number: PHHY2011US12358

PATIENT
  Age: 30 Year
  Sex: Male

DRUGS (1)
  1. EXJADE [Suspect]
     Indication: LEUKAEMIA
     Dosage: 750 MG, DAILY, 30 MIN. PRIOR TO MEALS, ORAL
     Route: 048

REACTIONS (1)
  - NEOPLASM MALIGNANT [None]
